FAERS Safety Report 5057067-X (Version None)
Quarter: 2006Q3

REPORT INFORMATION
  Report Type: 
  Country: None (occurrence: None)
  Receive Date: 20060718
  Receipt Date: 20060707
  Transmission Date: 20061208
  Serious: Yes (Hospitalization)
  Sender: FDA-Public Use
  Company Number: WAES 0607CHN00010

PATIENT
  Age: 52 Year
  Sex: Female

DRUGS (4)
  1. COZAAR [Suspect]
     Indication: CARDIAC FAILURE
     Dosage: PO
     Route: 048
     Dates: start: 20031222, end: 20060706
  2. FUROSEMIDE [Concomitant]
  3. METOPROLOL TARTRATE [Concomitant]
  4. SPIRONOLACTONE [Concomitant]

REACTIONS (8)
  - ADENOMYOSIS [None]
  - BREATH SOUNDS ABNORMAL [None]
  - CARDIAC MURMUR [None]
  - CHOLECYSTITIS [None]
  - DIARRHOEA [None]
  - ENTERITIS [None]
  - GASTROINTESTINAL CARCINOMA [None]
  - OEDEMA PERIPHERAL [None]
